FAERS Safety Report 11926040 (Version 2)
Quarter: 2016Q1

REPORT INFORMATION
  Report Type: Spontaneous
  Country: JP (occurrence: JP)
  Receive Date: 20160119
  Receipt Date: 20160125
  Transmission Date: 20160526
  Serious: Yes (Death, Disabling, Other)
  Sender: FDA-Public Use
  Company Number: JP-PFIZER INC-2015412027

PATIENT
  Age: 70 Year
  Sex: Male

DRUGS (4)
  1. VFEND [Suspect]
     Active Substance: VORICONAZOLE
     Indication: FUNGAL INFECTION
     Dosage: 250 MG, SINGLE
     Route: 048
     Dates: start: 20151124, end: 20151124
  2. NEORAL [Concomitant]
     Active Substance: CYCLOSPORINE
     Dosage: 20 MG, 2X/DAY
     Route: 048
     Dates: start: 20140401
  3. CLARITHROMYCIN. [Concomitant]
     Active Substance: CLARITHROMYCIN
     Dosage: 200 MG, 2X/DAY
     Route: 048
     Dates: start: 20111011
  4. PREDONINE [Concomitant]
     Active Substance: PREDNISOLONE\PREDNISOLONE ACETATE\PREDNISOLONE SODIUM SUCCINATE
     Dosage: 10 MG, 1X/DAY
     Route: 048
     Dates: start: 20140401

REACTIONS (6)
  - Death [Fatal]
  - Palpitations [Unknown]
  - Dyspnoea [Unknown]
  - Tremor [Unknown]
  - Asthenia [Unknown]
  - Visual impairment [Not Recovered/Not Resolved]

NARRATIVE: CASE EVENT DATE: 201511
